FAERS Safety Report 8838213 (Version 1)
Quarter: 2012Q4

REPORT INFORMATION
  Report Type: 
  Country: GB (occurrence: GB)
  Receive Date: 20121012
  Receipt Date: 20121012
  Transmission Date: 20130627
  Serious: Yes (Other)
  Sender: FDA-Public Use
  Company Number: GB-BRISTOL-MYERS SQUIBB COMPANY-17031527

PATIENT
  Age: 84 Year
  Sex: Male

DRUGS (2)
  1. MITOMYCIN-C [Suspect]
     Indication: TRANSURETHRAL BLADDER RESECTION
     Dosage: Mitomycin Injection
     Route: 065
     Dates: start: 20120917, end: 20120917
  2. HARTMANN [Suspect]
     Route: 065
     Dates: start: 20120917

REACTIONS (2)
  - Dyspnoea [Recovered/Resolved]
  - Lip swelling [Recovered/Resolved]
